FAERS Safety Report 9315898 (Version 3)
Quarter: 2013Q3

REPORT INFORMATION
  Report Type: Spontaneous
  Country: US (occurrence: US)
  Receive Date: 20130530
  Receipt Date: 20130806
  Transmission Date: 20140515
  Serious: Yes (Hospitalization, Other)
  Sender: FDA-Public Use
  Company Number: US-009507513-1305USA016144

PATIENT
  Age: 55 Year
  Sex: Female
  Weight: 65.76 kg

DRUGS (8)
  1. VICTRELIS [Suspect]
     Dosage: 800 MG (4 CAPSULES), TID FOR 44 WEEKS
     Route: 048
  2. REBETOL [Suspect]
     Dosage: 200 MG
     Route: 048
  3. PEGINTRON [Suspect]
     Dosage: PEGINTRON KIT 120 MICROGRAM
  4. TYLENOL [Concomitant]
     Dosage: 325 MG
     Route: 048
  5. OMEPRAZOLE [Concomitant]
     Dosage: 40 MG
     Route: 048
  6. IBUPROFEN [Concomitant]
     Dosage: 200 MG
     Route: 048
  7. ONDANSETRON [Concomitant]
  8. VITAMINS (UNSPECIFIED) [Concomitant]

REACTIONS (5)
  - Decreased appetite [Unknown]
  - Influenza like illness [Unknown]
  - Nausea [Not Recovered/Not Resolved]
  - Vomiting [Unknown]
  - Gastrointestinal tube insertion [Unknown]
